FAERS Safety Report 7625717-7 (Version None)
Quarter: 2011Q3

REPORT INFORMATION
  Report Type: 
  Country: None (occurrence: None)
  Receive Date: 20110721
  Receipt Date: 20110711
  Transmission Date: 20111222
  Serious: Yes (Hospitalization, Disabling, Other)
  Sender: FDA-Public Use
  Company Number: CA-BRISTOL-MYERS SQUIBB COMPANY-15446065

PATIENT
  Age: 84 Year
  Sex: Female

DRUGS (10)
  1. ORENCIA [Suspect]
     Indication: RHEUMATOID ARTHRITIS
     Dosage: 03AUG10,LSTDS:07DEC10,09FEB11,13JUN2011,INF:5
     Route: 042
     Dates: start: 20100803
  2. CALCIUM CARBONATE [Concomitant]
  3. LEVOTHYROXINE SODIUM [Concomitant]
  4. ISOPTIN [Concomitant]
  5. TYLENOL-500 [Concomitant]
  6. TYLENOL (CAPLET) [Concomitant]
  7. ZOPICLONE [Concomitant]
  8. VERAPAMIL [Concomitant]
  9. RAMIPRIL [Concomitant]
  10. THYROID TAB [Concomitant]
     Dosage: 1 DF =.137 UNIT NOT MENTIONED

REACTIONS (7)
  - OROPHARYNGEAL PAIN [None]
  - SKIN ULCER [None]
  - BACK PAIN [None]
  - PRURITUS [None]
  - DRUG INEFFECTIVE [None]
  - DYSPHAGIA [None]
  - DYSPHONIA [None]
